FAERS Safety Report 9855865 (Version 1)
Quarter: 2014Q1

REPORT INFORMATION
  Report Type: Spontaneous
  Country: US (occurrence: US)
  Receive Date: 20140130
  Receipt Date: 20140130
  Transmission Date: 20141002
  Serious: Yes (Hospitalization)
  Sender: FDA-Public Use
  Company Number: US-B.I. PHARMACEUTICALS,INC./RIDGEFIELD-2014-BI-03066BP

PATIENT
  Sex: Female

DRUGS (3)
  1. SPIRIVA [Suspect]
     Indication: CHRONIC OBSTRUCTIVE PULMONARY DISEASE
     Dosage: 18 MCG
     Route: 055
     Dates: start: 2004
  2. GENERIC PROTONIX [Concomitant]
     Route: 048
  3. LORATAB 10 [Concomitant]
     Indication: SYSTEMIC LUPUS ERYTHEMATOSUS
     Route: 048

REACTIONS (9)
  - Ligament rupture [Recovered/Resolved]
  - Foot fracture [Recovered/Resolved]
  - Gastric ulcer [Recovered/Resolved]
  - Fracture displacement [Recovered/Resolved]
  - Tendon injury [Recovered/Resolved]
  - Arthritis [Recovered/Resolved]
  - Gallbladder disorder [Recovered/Resolved]
  - Weight increased [Recovered/Resolved]
  - Gait disturbance [Recovered/Resolved]
